FAERS Safety Report 22607916 (Version 1)
Quarter: 2023Q2

REPORT INFORMATION
  Report Type: Spontaneous
  Country: CN (occurrence: CN)
  Receive Date: 20230616
  Receipt Date: 20230616
  Transmission Date: 20230722
  Serious: Yes (Hospitalization, Other)
  Sender: FDA-Public Use
  Company Number: CN-ORGANON-O2306CHN001946

PATIENT
  Age: 4 Year
  Sex: Female
  Weight: 18 kg

DRUGS (3)
  1. SINGULAIR [Suspect]
     Active Substance: MONTELUKAST SODIUM
     Indication: Asthma
     Dosage: 4MG, QD
     Route: 048
     Dates: start: 20230528, end: 20230603
  2. ALISMA PLANTAGO-AQUATICA SUBSP. ORIENTALE ROOT [Suspect]
     Active Substance: ALISMA PLANTAGO-AQUATICA SUBSP. ORIENTALE ROOT
     Indication: Cough
     Dosage: 8ML, TID
     Route: 048
     Dates: start: 20230528, end: 20230603
  3. AMBROXOL HYDROCHLORIDE\CLENBUTEROL [Suspect]
     Active Substance: AMBROXOL HYDROCHLORIDE\CLENBUTEROL
     Indication: Cough
     Dosage: 10ML, BID
     Route: 048
     Dates: start: 20230528, end: 20230603

REACTIONS (1)
  - Liver injury [Recovering/Resolving]

NARRATIVE: CASE EVENT DATE: 20230603
